FAERS Safety Report 23308958 (Version 1)
Quarter: 2023Q4

REPORT INFORMATION
  Report Type: Spontaneous
  Country: US (occurrence: None)
  Receive Date: 20231216
  Receipt Date: 20231216
  Transmission Date: 20240110
  Serious: No
  Sender: FDA-Public Use
  Company Number: None

PATIENT
  Age: 54 Year
  Sex: Female
  Weight: 72 kg

DRUGS (12)
  1. MOUNJARO [Suspect]
     Active Substance: TIRZEPATIDE
     Indication: Diabetes mellitus inadequate control
     Dosage: OTHER FREQUENCY : INJECTION EVERY 7;?
     Route: 058
     Dates: start: 20231121
  2. ESTRADIOL [Concomitant]
     Active Substance: ESTRADIOL
  3. PROGESTERONE [Concomitant]
     Active Substance: PROGESTERONE
  4. TESTOSTERONE [Concomitant]
     Active Substance: TESTOSTERONE
  5. LEVOTHYROXINE [Concomitant]
     Active Substance: LEVOTHYROXINE
  6. VITAMIN B12 [Concomitant]
     Active Substance: CYANOCOBALAMIN
  7. omegas [Concomitant]
  8. VITAMIN C [Concomitant]
     Active Substance: ASCORBIC ACID
  9. QUERCETIN [Concomitant]
     Active Substance: QUERCETIN
  10. GLUTATHIONE [Concomitant]
     Active Substance: GLUTATHIONE
  11. VITAMIN D [Concomitant]
     Active Substance: VITAMIN D NOS
  12. ZINC [Concomitant]
     Active Substance: PYRITHIONE ZINC\ZINC\ZINC CHLORIDE

REACTIONS (4)
  - Dermatitis allergic [None]
  - Pruritus [None]
  - Burning sensation [None]
  - Neuralgia [None]

NARRATIVE: CASE EVENT DATE: 20231213
